FAERS Safety Report 20128285 (Version 2)
Quarter: 2024Q2

REPORT INFORMATION
  Report Type: Spontaneous
  Country: IT (occurrence: IT)
  Receive Date: 20211129
  Receipt Date: 20240422
  Transmission Date: 20240716
  Serious: Yes (Life-Threatening, Other)
  Sender: FDA-Public Use
  Company Number: IT-ROCHE-2903568

PATIENT
  Age: 36 Year
  Sex: Female

DRUGS (46)
  1. DOCETAXEL [Suspect]
     Active Substance: DOCETAXEL\DOCETAXEL ANHYDROUS
     Indication: Hormone receptor positive breast cancer
     Dosage: 100 MILLIGRAM/SQ. METER (100 MG/M2, PER CYCLE (EVERY THREE WEEKS FOR FOUR CYCLES) )
     Route: 065
     Dates: start: 201201, end: 201204
  2. DOCETAXEL [Suspect]
     Active Substance: DOCETAXEL\DOCETAXEL ANHYDROUS
     Indication: HER2 positive breast cancer
     Dosage: UNK, 25% REDUCED DOSE
     Route: 065
  3. DOCETAXEL [Suspect]
     Active Substance: DOCETAXEL\DOCETAXEL ANHYDROUS
     Indication: Invasive ductal breast carcinoma
     Dosage: UNK, EVERY THREE WEEKS
     Route: 065
     Dates: start: 201601
  4. DOCETAXEL [Suspect]
     Active Substance: DOCETAXEL\DOCETAXEL ANHYDROUS
     Indication: Triple positive breast cancer
  5. DOXORUBICIN [Suspect]
     Active Substance: DOXORUBICIN
     Indication: Hormone receptor positive breast cancer
     Dosage: 60 MILLIGRAM/SQ. METER (3 WEEK)
     Route: 065
     Dates: start: 201201, end: 201204
  6. DOXORUBICIN [Suspect]
     Active Substance: DOXORUBICIN
     Indication: HER2 positive breast cancer
  7. DOXORUBICIN [Suspect]
     Active Substance: DOXORUBICIN
     Indication: Invasive ductal breast carcinoma
  8. GEMCITABINE [Suspect]
     Active Substance: GEMCITABINE
     Indication: Hormone receptor positive breast cancer
     Dosage: 1000 MILLIGRAM/SQ. METER(DAY 1, DAY 8)
     Route: 065
  9. GEMCITABINE [Suspect]
     Active Substance: GEMCITABINE
     Indication: HER2 positive breast cancer
     Dosage: UNK 25% REDUCED DOSE
     Route: 065
     Dates: start: 202012
  10. PACLITAXEL [Suspect]
     Active Substance: PACLITAXEL
     Indication: Hormone receptor positive breast cancer
     Dosage: 260 MILLIGRAM/SQ. METER
     Route: 065
     Dates: start: 201907, end: 201912
  11. PACLITAXEL [Suspect]
     Active Substance: PACLITAXEL
     Indication: HER2 positive breast cancer
  12. PACLITAXEL [Suspect]
     Active Substance: PACLITAXEL
     Indication: Breast cancer metastatic
  13. PACLITAXEL [Suspect]
     Active Substance: PACLITAXEL
     Indication: Triple positive breast cancer
  14. CAPECITABINE [Suspect]
     Active Substance: CAPECITABINE
     Indication: HER2 positive breast cancer
     Dosage: 1000 MILLIGRAM/KILOGRAM, ONCE A DAY (DAY1 - DAY 14)
     Route: 065
     Dates: start: 201810
  15. CAPECITABINE [Suspect]
     Active Substance: CAPECITABINE
     Indication: Hormone receptor positive breast cancer
     Dosage: 1000 MG/MQ BID D1?14 EVERY THREE WEEKS
     Route: 065
  16. CYCLOPHOSPHAMIDE [Suspect]
     Active Substance: CYCLOPHOSPHAMIDE
     Indication: Hormone receptor positive breast cancer
     Dosage: 600 MILLIGRAM/SQ. METER
     Route: 065
     Dates: start: 201201, end: 201204
  17. CYCLOPHOSPHAMIDE [Suspect]
     Active Substance: CYCLOPHOSPHAMIDE
     Indication: HER2 positive breast cancer
  18. CYCLOPHOSPHAMIDE [Suspect]
     Active Substance: CYCLOPHOSPHAMIDE
     Indication: Invasive ductal breast carcinoma
  19. DENOSUMAB [Suspect]
     Active Substance: DENOSUMAB
     Indication: Hormone receptor positive breast cancer
     Dosage: UNK EVERY FOUR WEEKS
     Route: 065
  20. DENOSUMAB [Suspect]
     Active Substance: DENOSUMAB
     Indication: HER2 positive breast cancer
  21. LAPATINIB [Suspect]
     Active Substance: LAPATINIB
     Indication: Hormone receptor positive breast cancer
     Dosage: 1250 MILLIGRAM, ONCE A DAY EVERY THREE WEEKS
     Route: 016
  22. LAPATINIB [Suspect]
     Active Substance: LAPATINIB
     Indication: HER2 positive breast cancer
  23. PERTUZUMAB [Suspect]
     Active Substance: PERTUZUMAB
     Indication: Hormone receptor positive breast cancer
     Dosage: UNK, EVERY THREE WEEKS
     Route: 065
     Dates: start: 201601
  24. PERTUZUMAB [Suspect]
     Active Substance: PERTUZUMAB
     Indication: HER2 positive breast cancer
  25. ADO-TRASTUZUMAB EMTANSINE [Suspect]
     Active Substance: ADO-TRASTUZUMAB EMTANSINE
     Indication: Hormone receptor positive breast cancer
     Dosage: 3.6 MILLIGRAM/KILOGRAM (3 WEEK)
     Route: 065
     Dates: start: 201608
  26. ADO-TRASTUZUMAB EMTANSINE [Suspect]
     Active Substance: ADO-TRASTUZUMAB EMTANSINE
     Indication: HER2 positive breast cancer
  27. TRASTUZUMAB [Suspect]
     Active Substance: TRASTUZUMAB
     Indication: HER2 positive breast cancer
     Dosage: 8 MILLIGRAM/KILOGRAM(LOADING DOSE , 4 CYCLES)
     Route: 065
     Dates: start: 201201, end: 201204
  28. TRASTUZUMAB [Suspect]
     Active Substance: TRASTUZUMAB
     Indication: Hormone receptor positive breast cancer
     Dosage: 6 MILLIGRAM/KILOGRAM(MAINTENANCE DOSE, 4 CYCLES)
     Route: 065
     Dates: start: 201201, end: 201204
  29. TRASTUZUMAB [Suspect]
     Active Substance: TRASTUZUMAB
     Indication: Invasive ductal breast carcinoma
     Dosage: 600 MILLIGRAM EVERY THREE WEEKS
     Route: 058
     Dates: start: 201210, end: 201304
  30. TRASTUZUMAB [Suspect]
     Active Substance: TRASTUZUMAB
     Dosage: UNK, EVERY THREE WEEKS
     Route: 065
     Dates: start: 201601
  31. TRASTUZUMAB [Suspect]
     Active Substance: TRASTUZUMAB
     Dosage: UNK,
     Route: 065
     Dates: start: 202012
  32. NAVELBINE [Suspect]
     Active Substance: VINORELBINE TARTRATE
     Indication: Hormone receptor positive breast cancer
     Dosage: 25 MILLIGRAM/KILOGRAM (3 WEEK) (DAY 1-DAY8)
     Route: 065
  33. NAVELBINE [Suspect]
     Active Substance: VINORELBINE TARTRATE
     Indication: HER2 positive breast cancer
  34. TAMOXIFEN [Concomitant]
     Active Substance: TAMOXIFEN
     Indication: Product used for unknown indication
     Dosage: UNK
     Route: 065
     Dates: start: 201209
  35. GONADORELIN DIACETATE TETRAHYDRATE [Concomitant]
     Active Substance: GONADORELIN DIACETATE TETRAHYDRATE
     Indication: Hormone receptor positive breast cancer
     Dosage: 600 MG/M2
     Route: 065
     Dates: start: 201209
  36. GONADORELIN DIACETATE TETRAHYDRATE [Concomitant]
     Active Substance: GONADORELIN DIACETATE TETRAHYDRATE
     Indication: HER2 positive breast cancer
  37. GRANULOCYTE COLONY-STIMULATING FACTOR NOS [Concomitant]
     Active Substance: GRANULOCYTE COLONY-STIMULATING FACTOR NOS
     Indication: Prophylaxis
     Dosage: UNK
     Route: 065
  38. GLUTATHIONE [Suspect]
     Active Substance: GLUTATHIONE
     Indication: Hypertransaminasaemia
     Dosage: UNK
  39. GLUTATHIONE [Suspect]
     Active Substance: GLUTATHIONE
     Indication: Triple positive breast cancer
  40. XGEVA [Suspect]
     Active Substance: DENOSUMAB
     Indication: Metastases to bone
     Dosage: UNK(EVERY 4 WEEKS )
     Route: 065
  41. XGEVA [Suspect]
     Active Substance: DENOSUMAB
     Indication: Hormone receptor positive breast cancer
  42. XGEVA [Suspect]
     Active Substance: DENOSUMAB
     Indication: HER2 positive breast cancer
  43. CYCLOPHOSPHAMIDE [Suspect]
     Active Substance: CYCLOPHOSPHAMIDE
     Indication: Invasive ductal breast carcinoma
     Dosage: 600 MILLIEQUIVALENT PER SQUARE METRE
     Route: 065
     Dates: start: 201201, end: 202104
  44. VINORELBINE [Suspect]
     Active Substance: VINORELBINE TARTRATE
     Indication: Product used for unknown indication
     Dosage: UNK
     Route: 065
  45. DOXORUBICIN HYDROCHLORIDE [Suspect]
     Active Substance: DOXORUBICIN HYDROCHLORIDE
     Indication: Invasive ductal breast carcinoma
     Dosage: 2.86  MILLIEQUIVALENT PER SQUARE METRE(60 MG/M2,1 IN 3 WK)
     Route: 065
  46. FILGRASTIM [Suspect]
     Active Substance: FILGRASTIM
     Indication: Prophylaxis
     Dosage: UNK
     Route: 065

REACTIONS (10)
  - Neutropenia [Recovered/Resolved]
  - Hypertransaminasaemia [Recovered/Resolved]
  - Thrombocytopenia [Recovered/Resolved]
  - Mucosal inflammation [Recovered/Resolved]
  - Anaemia [Recovered/Resolved]
  - Pain in extremity [Recovered/Resolved]
  - Metastases to lung [Unknown]
  - Hepatotoxicity [Recovering/Resolving]
  - Metastases to bone [Unknown]
  - Metastases to lymph nodes [Unknown]
